FAERS Safety Report 4342476-4 (Version None)
Quarter: 2004Q2

REPORT INFORMATION
  Report Type: 
  Country: None (occurrence: None)
  Receive Date: 20040419
  Receipt Date: 20040419
  Transmission Date: 20050107
  Serious: No
  Sender: FDA-Public Use
  Company Number: None

PATIENT
  Age: 45 Year
  Sex: Female
  Weight: 73.0291 kg

DRUGS (1)
  1. PROZAC [Suspect]
     Indication: DEPRESSION
     Dosage: 20 MG BID

REACTIONS (3)
  - AFFECTIVE DISORDER [None]
  - CRYING [None]
  - PHARMACEUTICAL PRODUCT COMPLAINT [None]
